FAERS Safety Report 4409893-5 (Version None)
Quarter: 2004Q3

REPORT INFORMATION
  Report Type: 
  Country: None (occurrence: None)
  Receive Date: 20040728
  Receipt Date: 20040728
  Transmission Date: 20050211
  Serious: No
  Sender: FDA-Public Use
  Company Number: None

PATIENT

DRUGS (4)
  1. RANITIDINE [Suspect]
     Dosage: LIQUID
  2. MEGESTROL [Suspect]
     Dosage: SUSPENSION
  3. SUCRALFATE [Suspect]
     Dosage: SUSPENSION
  4. VALPROIC ACID [Suspect]
     Dosage: LIQUID

REACTIONS (1)
  - MEDICATION ERROR [None]
